FAERS Safety Report 11090072 (Version 1)
Quarter: 2015Q2

REPORT INFORMATION
  Report Type: Spontaneous
  Country: US (occurrence: None)
  Receive Date: 20150501
  Receipt Date: 20150501
  Transmission Date: 20150821
  Serious: Yes (Other)
  Sender: FDA-Public Use
  Company Number: 2839983

PATIENT
  Age: 11 Year
  Sex: Female
  Weight: 56.2 kg

DRUGS (1)
  1. METHOTREXATE [Suspect]
     Active Substance: METHOTREXATE
     Indication: OSTEOSARCOMA
     Dosage: 20 G GRAM(S), UNKNOWN,  INTRAVENOUS (NOT OTHERWISE SPECIFIED)
     Route: 042

REACTIONS (5)
  - Heart rate decreased [None]
  - Vomiting [None]
  - Hypertension [None]
  - Peripheral coldness [None]
  - Pupils unequal [None]

NARRATIVE: CASE EVENT DATE: 20150403
